FAERS Safety Report 6442314-X (Version None)
Quarter: 2009Q4

REPORT INFORMATION
  Report Type: 
  Country: None (occurrence: None)
  Receive Date: 20091112
  Receipt Date: 20091028
  Transmission Date: 20100525
  Serious: Yes (Life-Threatening, Hospitalization)
  Sender: FDA-Public Use
  Company Number: 2009AL007040

PATIENT
  Age: 68 Year
  Sex: Female

DRUGS (10)
  1. METFORMIN HCL [Suspect]
     Indication: DIABETES MELLITUS
     Dosage: 1000 MG, BID;
     Dates: start: 20070401, end: 20091005
  2. CISPLATIN [Concomitant]
  3. GLIMEPIRIDE [Concomitant]
  4. ISORDIL [Concomitant]
  5. MONO CEDOCARD RETARD [Concomitant]
  6. OMEPRAZOLE [Concomitant]
  7. SIMVASTATIN [Concomitant]
  8. THYRAX DUOTAB [Concomitant]
  9. DILTIAZEM HCL [Concomitant]
  10. ETOPOSIDE [Concomitant]

REACTIONS (2)
  - NAUSEA [None]
  - VOMITING [None]
